FAERS Safety Report 23876506 (Version 6)
Quarter: 2024Q3

REPORT INFORMATION
  Report Type: Report from Study
  Country: US (occurrence: US)
  Receive Date: 20240521
  Receipt Date: 20240925
  Transmission Date: 20241016
  Serious: Yes (Hospitalization, Other)
  Sender: ABBVIE
  Company Number: US-ABBVIE-5764791

PATIENT
  Age: 77 Year
  Sex: Female
  Weight: 78.925 kg

DRUGS (10)
  1. HUMIRA [Suspect]
     Active Substance: ADALIMUMAB
     Indication: Rheumatoid arthritis
     Dosage: FORM STRENGTH WAS 40 MILLIGRAM?CITRATE FREE
     Route: 058
     Dates: start: 20231213, end: 2024
  2. HUMIRA [Suspect]
     Active Substance: ADALIMUMAB
     Dosage: FORM STRENGTH WAS 40 MILLIGRAM?CITRATE FREE
     Route: 058
     Dates: start: 2024
  3. AMLODIPINE [Concomitant]
     Active Substance: AMLODIPINE BESYLATE
     Indication: Blood pressure measurement
  4. OMEPRAZOLE [Concomitant]
     Active Substance: OMEPRAZOLE
     Indication: Gastrooesophageal reflux disease
  5. VITAMIN D [Concomitant]
     Active Substance: VITAMIN D NOS
     Indication: Vitamin supplementation
  6. ACETAMINOPHEN [Concomitant]
     Active Substance: ACETAMINOPHEN
     Indication: Arthralgia
  7. FISH OIL [Concomitant]
     Active Substance: FISH OIL
     Indication: Supplementation therapy
  8. PREDNISONE [Concomitant]
     Active Substance: PREDNISONE
     Indication: Joint swelling
  9. XARELTO [Concomitant]
     Active Substance: RIVAROXABAN
     Indication: Pulmonary thrombosis
  10. METOPROLOL [Concomitant]
     Active Substance: METOPROLOL
     Indication: Palpitations

REACTIONS (20)
  - Pulmonary thrombosis [Recovering/Resolving]
  - Arthralgia [Not Recovered/Not Resolved]
  - Drug ineffective [Not Recovered/Not Resolved]
  - Rheumatoid arthritis [Not Recovered/Not Resolved]
  - Palpitations [Recovered/Resolved]
  - Hysterectomy [Recovering/Resolving]
  - Endometrial cancer [Not Recovered/Not Resolved]
  - Musculoskeletal stiffness [Not Recovered/Not Resolved]
  - Peripheral swelling [Not Recovered/Not Resolved]
  - Pain in extremity [Not Recovered/Not Resolved]
  - Pain [Recovering/Resolving]
  - Joint stiffness [Not Recovered/Not Resolved]
  - Musculoskeletal stiffness [Recovering/Resolving]
  - Arthritis [Unknown]
  - Adverse drug reaction [Recovered/Resolved]
  - Joint swelling [Not Recovered/Not Resolved]
  - Anxiety [Not Recovered/Not Resolved]
  - Gait disturbance [Not Recovered/Not Resolved]
  - Blood pressure decreased [Not Recovered/Not Resolved]
  - Shock [Recovering/Resolving]

NARRATIVE: CASE EVENT DATE: 20240401
